FAERS Safety Report 15295385 (Version 3)
Quarter: 2018Q4

REPORT INFORMATION
  Report Type: Spontaneous
  Country: US (occurrence: US)
  Receive Date: 20180820
  Receipt Date: 20181002
  Transmission Date: 20190204
  Serious: Yes (Other)
  Sender: FDA-Public Use
  Company Number: US-ASTRAZENECA-2018SF04350

PATIENT
  Age: 708 Month
  Sex: Male
  Weight: 103.9 kg

DRUGS (2)
  1. FASENRA [Suspect]
     Active Substance: BENRALIZUMAB
     Indication: ASTHMA
     Route: 058
  2. FASENRA [Suspect]
     Active Substance: BENRALIZUMAB
     Indication: ASTHMA
     Route: 058
     Dates: start: 20180523, end: 20180718

REACTIONS (10)
  - Peripheral venous disease [Unknown]
  - Musculoskeletal pain [Not Recovered/Not Resolved]
  - Frustration tolerance decreased [Unknown]
  - Depressed mood [Unknown]
  - Hypokinesia [Unknown]
  - Fear [Unknown]
  - Peripheral swelling [Not Recovered/Not Resolved]
  - Pain [Not Recovered/Not Resolved]
  - Joint swelling [Unknown]
  - Arthralgia [Unknown]

NARRATIVE: CASE EVENT DATE: 201807
